FAERS Safety Report 15748102 (Version 1)
Quarter: 2018Q4

REPORT INFORMATION
  Report Type: Spontaneous
  Country: US (occurrence: US)
  Receive Date: 20181221
  Receipt Date: 20181221
  Transmission Date: 20190205
  Serious: Yes (Other)
  Sender: FDA-Public Use
  Company Number: US-ZYDUS-031702

PATIENT
  Age: 57 Year
  Sex: Male

DRUGS (8)
  1. WARFARIN [Suspect]
     Active Substance: WARFARIN
     Indication: HYPERCOAGULATION
     Dosage: 17.5 MG ON SUNDAY, WEDNESDAY, AND FRIDAY
     Route: 065
     Dates: start: 2005
  2. COBICISTAT/DARUNAVIR/EMTRICITABINE/TENOFOVIR [Interacting]
     Active Substance: COBICISTAT\DARUNAVIR\EMTRICITABINE\TENOFOVIR ALAFENAMIDE
     Indication: ANTIRETROVIRAL THERAPY
     Route: 065
     Dates: start: 201708
  3. RALTEGRAVIR. [Concomitant]
     Active Substance: RALTEGRAVIR
     Indication: IMMUNE RECONSTITUTION INFLAMMATORY SYNDROME
     Route: 065
  4. DOLUTEGRAVIR [Concomitant]
     Active Substance: DOLUTEGRAVIR
     Indication: ANTIRETROVIRAL THERAPY
     Route: 065
     Dates: start: 201708
  5. WARFARIN [Interacting]
     Active Substance: WARFARIN
     Indication: HYPERCOAGULATION
     Dosage: 15 MG ON MONDAY, TUESDAY, THURSDAY AND SATURDAY
     Route: 065
     Dates: start: 2005
  6. LOPINAVIR/RITONAVIR [Interacting]
     Active Substance: LOPINAVIR\RITONAVIR
     Indication: IMMUNE RECONSTITUTION INFLAMMATORY SYNDROME
     Route: 065
  7. MARAVIROC [Concomitant]
     Active Substance: MARAVIROC
     Indication: IMMUNE RECONSTITUTION INFLAMMATORY SYNDROME
     Route: 065
  8. EMTRICITABINE [Concomitant]
     Active Substance: EMTRICITABINE
     Indication: IMMUNE RECONSTITUTION INFLAMMATORY SYNDROME
     Route: 065

REACTIONS (2)
  - Drug interaction [Unknown]
  - Anticoagulation drug level above therapeutic [Recovered/Resolved]
